FAERS Safety Report 7403290-6 (Version None)
Quarter: 2011Q2

REPORT INFORMATION
  Report Type: 
  Country: None (occurrence: None)
  Receive Date: 20110408
  Receipt Date: 20110405
  Transmission Date: 20111010
  Serious: Yes (Other)
  Sender: FDA-Public Use
  Company Number: US-MEDIMMUNE-MEDI-0013033

PATIENT
  Sex: Male
  Weight: 7.264 kg

DRUGS (2)
  1. POLY-VI-SOL [Concomitant]
  2. SYNAGIS [Suspect]
     Route: 030

REACTIONS (1)
  - MUSCULAR WEAKNESS [None]
